FAERS Safety Report 8297252-7 (Version None)
Quarter: 2012Q2

REPORT INFORMATION
  Report Type: 
  Country: None (occurrence: None)
  Receive Date: 20120419
  Receipt Date: 20120411
  Transmission Date: 20120825
  Serious: Yes (Death)
  Sender: FDA-Public Use
  Company Number: CA-JNJFOC-20120405819

PATIENT

DRUGS (6)
  1. CODEINE SULFATE [Suspect]
     Indication: PAIN
     Route: 065
  2. MORPHINE [Suspect]
     Indication: PAIN
     Route: 048
  3. MEPERIDINE HCL [Suspect]
     Indication: PAIN
     Route: 065
  4. FENTANYL [Suspect]
     Indication: PAIN
     Route: 062
  5. OXYCODONE HCL [Suspect]
     Indication: PAIN
     Route: 065
  6. HYDROMORPHONE HCL [Suspect]
     Indication: PAIN
     Route: 065

REACTIONS (1)
  - DEATH [None]
